FAERS Safety Report 5565258-4 (Version None)
Quarter: 2007Q4

REPORT INFORMATION
  Report Type: 
  Country: None (occurrence: None)
  Receive Date: 20071218
  Receipt Date: 20071206
  Transmission Date: 20080405
  Serious: Yes (Hospitalization)
  Sender: FDA-Public Use
  Company Number: US-AMGEN-US255582

PATIENT
  Sex: Female

DRUGS (10)
  1. PROCRIT [Suspect]
     Indication: DRUG USE FOR UNKNOWN INDICATION
     Route: 065
  2. REVLIMID [Suspect]
     Route: 048
     Dates: start: 20070821, end: 20070827
  3. HYDROMORPHONE HCL [Concomitant]
     Route: 065
  4. FENTANYL [Concomitant]
     Route: 065
  5. HYOSCYAMINE [Concomitant]
     Route: 065
  6. NITROGLYCERIN [Concomitant]
     Route: 060
  7. BACLOFEN [Concomitant]
     Route: 065
  8. CITALOPRAM HYDROBROMIDE [Concomitant]
     Route: 065
  9. MAGNESIUM OXIDE [Concomitant]
     Route: 065
  10. THYROID TAB [Concomitant]
     Route: 065

REACTIONS (1)
  - PULMONARY EMBOLISM [None]
